FAERS Safety Report 5333995-2 (Version None)
Quarter: 2007Q2

REPORT INFORMATION
  Report Type: 
  Country: None (occurrence: None)
  Receive Date: 20070524
  Receipt Date: 20070514
  Transmission Date: 20071010
  Serious: Yes (Hospitalization, Other)
  Sender: FDA-Public Use
  Company Number: JP-PFIZER INC-2007038286

PATIENT
  Sex: Male
  Weight: 62 kg

DRUGS (5)
  1. GABAPEN [Suspect]
     Indication: EPILEPSY
     Route: 048
  2. HYSERENIN [Concomitant]
     Indication: EPILEPSY
     Route: 048
  3. TEGRETOL [Concomitant]
     Indication: EPILEPSY
     Route: 048
  4. RIVOTRIL [Concomitant]
     Indication: EPILEPSY
     Route: 048
  5. LAC B [Concomitant]

REACTIONS (3)
  - DRUG INEFFECTIVE [None]
  - HYPOCHLORAEMIA [None]
  - HYPONATRAEMIA [None]
